FAERS Safety Report 19237673 (Version 1)
Quarter: 2021Q2

REPORT INFORMATION
  Report Type: Spontaneous
  Country: US (occurrence: US)
  Receive Date: 20210510
  Receipt Date: 20210510
  Transmission Date: 20210717
  Serious: Yes (Death, Other)
  Sender: FDA-Public Use
  Company Number: US-SYNEX-T202102008

PATIENT
  Age: 54 Year
  Sex: Male

DRUGS (6)
  1. DOBUTAMINE [Concomitant]
     Active Substance: DOBUTAMINE HYDROCHLORIDE
     Indication: RIGHT VENTRICULAR DYSFUNCTION
     Dosage: UNK
     Route: 065
  2. EPINEPHRINE. [Concomitant]
     Active Substance: EPINEPHRINE
     Indication: RIGHT VENTRICULAR DYSFUNCTION
  3. INOMAX [Suspect]
     Active Substance: NITRIC OXIDE
     Indication: RIGHT VENTRICULAR DYSFUNCTION
     Dosage: UNK (INHALATION)
     Route: 065
  4. HEPARIN [Suspect]
     Active Substance: HEPARIN SODIUM
     Indication: ANTICOAGULANT THERAPY
     Dosage: UNK
     Route: 065
  5. EPINEPHRINE. [Concomitant]
     Active Substance: EPINEPHRINE
     Indication: ACUTE LEFT VENTRICULAR FAILURE
     Dosage: UNK
     Route: 065
  6. DOBUTAMINE [Concomitant]
     Active Substance: DOBUTAMINE HYDROCHLORIDE
     Indication: ACUTE LEFT VENTRICULAR FAILURE

REACTIONS (6)
  - Distributive shock [Unknown]
  - Product use in unapproved indication [Unknown]
  - Hypoxia [Unknown]
  - Product use issue [Unknown]
  - Pulmonary embolism [Fatal]
  - Thromboembolectomy [Unknown]
